FAERS Safety Report 18513078 (Version 1)
Quarter: 2020Q4

REPORT INFORMATION
  Report Type: Spontaneous
  Country: US (occurrence: US)
  Receive Date: 20201117
  Receipt Date: 20201117
  Transmission Date: 20210114
  Serious: Yes (Other)
  Sender: FDA-Public Use
  Company Number: US-PURDUE-USA-2020-0165628

PATIENT
  Sex: Female

DRUGS (11)
  1. ALCOHOL. [Suspect]
     Active Substance: ALCOHOL
     Indication: PRODUCT USED FOR UNKNOWN INDICATION
     Route: 065
  2. OXYCONTIN [Suspect]
     Active Substance: OXYCODONE HYDROCHLORIDE
     Dosage: 320 MG, DAILY
     Route: 048
     Dates: start: 1997
  3. PERCOCET                           /00446701/ [Suspect]
     Active Substance: ACETAMINOPHEN\OXYCODONE HYDROCHLORIDE\OXYCODONE TEREPHTHALATE
     Indication: PRODUCT USED FOR UNKNOWN INDICATION
     Dosage: 100X10 MG, PER MONTH
     Route: 065
     Dates: start: 1997
  4. LSD [Suspect]
     Active Substance: LYSERGIDE
     Indication: PRODUCT USED FOR UNKNOWN INDICATION
     Route: 065
  5. METHAMPHETAMINE [Suspect]
     Active Substance: METHAMPHETAMINE
     Indication: PRODUCT USED FOR UNKNOWN INDICATION
     Route: 065
  6. LEXAPRO [Concomitant]
     Active Substance: ESCITALOPRAM OXALATE
     Indication: PRODUCT USED FOR UNKNOWN INDICATION
     Dosage: 20 MG, DAILY
     Route: 065
  7. CYMBALTA [Concomitant]
     Active Substance: DULOXETINE HYDROCHLORIDE
     Indication: PRODUCT USED FOR UNKNOWN INDICATION
     Dosage: 30 MG, DAILY
     Route: 065
  8. METHADONE [Suspect]
     Active Substance: METHADONE HYDROCHLORIDE
     Indication: PRODUCT USED FOR UNKNOWN INDICATION
     Route: 065
  9. MARIJUANA [Suspect]
     Active Substance: CANNABIS SATIVA SUBSP. INDICA TOP
     Indication: PRODUCT USED FOR UNKNOWN INDICATION
     Route: 065
  10. OXYCONTIN [Suspect]
     Active Substance: OXYCODONE HYDROCHLORIDE
     Indication: BACK PAIN
     Dosage: 4X80 MG, DAILY
     Route: 048
     Dates: start: 1997
  11. COCAINE [Suspect]
     Active Substance: COCAINE
     Indication: PRODUCT USED FOR UNKNOWN INDICATION
     Route: 065

REACTIONS (32)
  - Major depression [Unknown]
  - Anxiety [Unknown]
  - Loss of consciousness [Unknown]
  - Restlessness [Unknown]
  - Pain [Unknown]
  - Alcoholism [Unknown]
  - Suicidal ideation [Unknown]
  - Premature menopause [Unknown]
  - Chills [Unknown]
  - Drug dependence [Unknown]
  - Intervertebral disc protrusion [Unknown]
  - Muscle twitching [Unknown]
  - Muscle spasms [Unknown]
  - Hyperhidrosis [Unknown]
  - Abdominal pain [Unknown]
  - Intentional product misuse [Unknown]
  - Temperature intolerance [Unknown]
  - Memory impairment [Unknown]
  - Panic attack [Unknown]
  - Nausea [Unknown]
  - Asthenia [Unknown]
  - Drug withdrawal syndrome [Unknown]
  - Drug abuse [Unknown]
  - Chronic obstructive pulmonary disease [Unknown]
  - Disturbance in attention [Unknown]
  - Affective disorder [Unknown]
  - Diarrhoea [Unknown]
  - Tremor [Unknown]
  - Insomnia [Unknown]
  - Depressed mood [Unknown]
  - Back pain [Unknown]
  - Decreased appetite [Unknown]
